FAERS Safety Report 16926238 (Version 1)
Quarter: 2019Q4

REPORT INFORMATION
  Report Type: Spontaneous
  Country: FR (occurrence: FR)
  Receive Date: 20191016
  Receipt Date: 20191016
  Transmission Date: 20200122
  Serious: Yes (Other)
  Sender: FDA-Public Use
  Company Number: FR-ABBVIE-19K-056-2965166-00

PATIENT
  Age: 24 Year
  Sex: Female

DRUGS (1)
  1. HUMIRA [Suspect]
     Active Substance: ADALIMUMAB
     Indication: CROHN^S DISEASE
     Route: 058

REACTIONS (5)
  - Fistula of small intestine [Recovering/Resolving]
  - Superinfection [Recovering/Resolving]
  - Liver abscess [Recovering/Resolving]
  - Therapeutic product effect incomplete [Unknown]
  - Abscess [Recovering/Resolving]
